FAERS Safety Report 10865188 (Version 1)
Quarter: 2015Q1

REPORT INFORMATION
  Report Type: Report from Study
  Country: US (occurrence: US)
  Receive Date: 20150224
  Receipt Date: 20150224
  Transmission Date: 20150721
  Serious: No
  Sender: FDA-Public Use
  Company Number: US-MYLANLABS-2014M1001498

PATIENT
  Sex: Female
  Weight: 59 kg

DRUGS (3)
  1. HCTZ [Concomitant]
     Active Substance: HYDROCHLOROTHIAZIDE
     Dosage: UNK
  2. AMNESTEEM [Suspect]
     Active Substance: ISOTRETINOIN
     Indication: ACNE
     Dosage: 40 MG, QD
     Route: 048
     Dates: start: 20140318, end: 20140620
  3. NEXPLANON [Concomitant]
     Active Substance: ETONOGESTREL
     Dosage: IMPLANTABLE

REACTIONS (3)
  - Headache [Recovered/Resolved]
  - Dehydration [Recovered/Resolved]
  - Inadequate diet [Recovered/Resolved]

NARRATIVE: CASE EVENT DATE: 2014
